FAERS Safety Report 5390465-3 (Version None)
Quarter: 2007Q3

REPORT INFORMATION
  Report Type: 
  Country: None (occurrence: None)
  Receive Date: 20070718
  Receipt Date: 20070312
  Transmission Date: 20080115
  Serious: No
  Sender: FDA-Public Use
  Company Number: US-KINGPHARMUSA00001-K200700297

PATIENT

DRUGS (3)
  1. LEVOXYL [Suspect]
     Indication: HYPOTHYROIDISM
     Dosage: 25 MCG, QD
     Route: 048
     Dates: start: 20000101, end: 20060101
  2. LEVOXYL [Suspect]
     Dosage: 50 MCG, QD
     Route: 048
     Dates: start: 20060101
  3. MOTRIN [Concomitant]
     Indication: ARTHRALGIA
     Dosage: UNK, UNK
     Route: 048

REACTIONS (4)
  - BODY TEMPERATURE FLUCTUATION [None]
  - DRUG EFFECT DECREASED [None]
  - HEADACHE [None]
  - LYMPHADENOPATHY [None]
